FAERS Safety Report 23165443 (Version 3)
Quarter: 2023Q4

REPORT INFORMATION
  Report Type: Report from Study
  Country: US (occurrence: US)
  Receive Date: 20231109
  Receipt Date: 20231227
  Transmission Date: 20240110
  Serious: Yes (Other)
  Sender: FDA-Public Use
  Company Number: US-GILEAD-2023-0634243

PATIENT
  Sex: Female

DRUGS (1)
  1. IDELALISIB [Suspect]
     Active Substance: IDELALISIB
     Indication: Chronic lymphocytic leukaemia refractory
     Dosage: 100 MG TAKE WHOLE WITH WATER, WITH OR WITHOUT FOOD
     Route: 048

REACTIONS (3)
  - Blindness [Unknown]
  - Visual impairment [Unknown]
  - Anxiety [Unknown]
